FAERS Safety Report 4965810-0 (Version None)
Quarter: 2006Q2

REPORT INFORMATION
  Report Type: 
  Country: None (occurrence: None)
  Receive Date: 20060406
  Receipt Date: 20060406
  Transmission Date: 20061013
  Serious: Yes (Other)
  Sender: FDA-Public Use
  Company Number: None

PATIENT
  Sex: Female
  Weight: 60.3284 kg

DRUGS (1)
  1. CETUXIMAB (IMCLONE/BMS) 100 MG [Suspect]
     Indication: NON-SMALL CELL LUNG CANCER
     Dosage: 664 MG IV LOADING DOSE
     Route: 042

REACTIONS (7)
  - BODY TEMPERATURE DECREASED [None]
  - COUGH [None]
  - INFUSION RELATED REACTION [None]
  - LACRIMATION INCREASED [None]
  - OCULAR HYPERAEMIA [None]
  - PALMAR ERYTHEMA [None]
  - PRURITUS [None]
